FAERS Safety Report 9319616 (Version 1)
Quarter: 2013Q2

REPORT INFORMATION
  Report Type: Spontaneous
  Country: US (occurrence: US)
  Receive Date: 20130530
  Receipt Date: 20130530
  Transmission Date: 20140414
  Serious: No
  Sender: FDA-Public Use
  Company Number: US-GLAXOSMITHKLINE-A1013137A

PATIENT
  Age: 38 Year
  Sex: Female

DRUGS (2)
  1. FLOLAN [Suspect]
     Indication: PRODUCT USED FOR UNKNOWN INDICATION
     Route: 042
  2. LETAIRIS [Suspect]
     Indication: COR PULMONALE
     Dosage: 10MG PER DAY
     Route: 048
     Dates: start: 20090318

REACTIONS (1)
  - Rash [Unknown]
